FAERS Safety Report 11999236 (Version 2)
Quarter: 2016Q1

REPORT INFORMATION
  Report Type: Spontaneous
  Country: JP (occurrence: JP)
  Receive Date: 20160204
  Receipt Date: 20160229
  Transmission Date: 20160526
  Serious: Yes (Other)
  Sender: FDA-Public Use
  Company Number: JP-ORION CORPORATION ORION PHARMA-ENT 2016-0015

PATIENT
  Age: 85 Year
  Sex: Female

DRUGS (4)
  1. MENESIT [Concomitant]
     Active Substance: CARBIDOPA\LEVODOPA
     Route: 065
  2. BI SIFROL [Concomitant]
     Active Substance: PRAMIPEXOLE
     Route: 065
  3. TRERIEF [Concomitant]
     Active Substance: ZONISAMIDE
     Route: 065
  4. COMTAN [Suspect]
     Active Substance: ENTACAPONE
     Indication: PARKINSON^S DISEASE
     Route: 048

REACTIONS (2)
  - Neuroleptic malignant syndrome [Recovered/Resolved]
  - Condition aggravated [Unknown]
